FAERS Safety Report 19367647 (Version 5)
Quarter: 2022Q2

REPORT INFORMATION
  Report Type: Spontaneous
  Country: US (occurrence: US)
  Receive Date: 20210603
  Receipt Date: 20220527
  Transmission Date: 20220720
  Serious: Yes (Hospitalization, Other)
  Sender: FDA-Public Use
  Company Number: US-PFIZER INC-2021585872

PATIENT
  Age: 64 Year
  Sex: Male
  Weight: 68 kg

DRUGS (19)
  1. TYGACIL [Suspect]
     Active Substance: TIGECYCLINE
     Indication: Atypical pneumonia
     Dosage: 50 MG, TWICE DAILY
     Dates: end: 202104
  2. TYGACIL [Suspect]
     Active Substance: TIGECYCLINE
     Dosage: 25 MG, TWICE DAILY
     Dates: start: 202104
  3. NUZYRA [Suspect]
     Active Substance: OMADACYCLINE
     Indication: Atypical pneumonia
     Dosage: 450 MG, ONCE DAILY
     Route: 048
     Dates: start: 20210425, end: 20210426
  4. NUZYRA [Suspect]
     Active Substance: OMADACYCLINE
     Indication: Mycobacterial infection
     Dosage: 300 MG, DAILY
     Dates: start: 20210427, end: 20210510
  5. NUZYRA [Suspect]
     Active Substance: OMADACYCLINE
     Dosage: 300 MG, DAILY
     Route: 048
     Dates: start: 20210902
  6. BACTRIM [Suspect]
     Active Substance: SULFAMETHOXAZOLE\TRIMETHOPRIM
     Indication: Atypical pneumonia
     Dosage: UNK
     Dates: start: 20210421, end: 2021
  7. BACTRIM [Suspect]
     Active Substance: SULFAMETHOXAZOLE\TRIMETHOPRIM
     Dosage: UNK
     Dates: start: 2021, end: 20210509
  8. AMIKACIN [Suspect]
     Active Substance: AMIKACIN
     Dosage: 1500 MG THREE TIMES PER WEEK
  9. ALBUTEROL [Concomitant]
     Active Substance: ALBUTEROL
     Dosage: UNK UNK, AS NEEDED
  10. ALBUTEROL [Concomitant]
     Active Substance: ALBUTEROL
     Dosage: UNK, TWICE DAILY
  11. ADVAIR HFA [Concomitant]
     Active Substance: FLUTICASONE PROPIONATE\SALMETEROL XINAFOATE
     Dosage: 2 PUFFS, TWICE DAILY
  12. PROSCAR [Concomitant]
     Active Substance: FINASTERIDE
     Dosage: 5 MG
  13. FLONASE [Concomitant]
     Active Substance: FLUTICASONE PROPIONATE
     Dosage: UNK, DAILY
  14. LIPITOR [Concomitant]
     Active Substance: ATORVASTATIN CALCIUM
     Dosage: 10 MG
  15. NORVASC [Concomitant]
     Active Substance: AMLODIPINE BESYLATE
     Dosage: 5 MG
  16. KENALOG [Concomitant]
     Active Substance: TRIAMCINOLONE ACETONIDE
     Dosage: 80 MG, ONCE PER YEAR IN THE SPRING
  17. ZOFRAN [Concomitant]
     Active Substance: ONDANSETRON HYDROCHLORIDE
     Dosage: UNK
  18. CLARITIN [Concomitant]
     Active Substance: LORATADINE
     Dosage: 10 MG, DAILY
  19. CLOFAZIMINE [Concomitant]
     Active Substance: CLOFAZIMINE
     Dosage: UNK

REACTIONS (8)
  - Sepsis [Recovered/Resolved]
  - Mycobacterial infection [Unknown]
  - Pneumonia bacterial [Unknown]
  - Nausea [Not Recovered/Not Resolved]
  - Vomiting [Recovered/Resolved]
  - Dehydration [Unknown]
  - Decreased appetite [Not Recovered/Not Resolved]
  - Condition aggravated [Unknown]

NARRATIVE: CASE EVENT DATE: 20210401
